FAERS Safety Report 7878362-2 (Version None)
Quarter: 2011Q4

REPORT INFORMATION
  Report Type: 
  Country: None (occurrence: None)
  Receive Date: 20111101
  Receipt Date: 20111024
  Transmission Date: 20120403
  Serious: Yes (Other)
  Sender: FDA-Public Use
  Company Number: US-US-EMD SERONO, INC.-7091766

PATIENT
  Sex: Female

DRUGS (1)
  1. REBIF [Suspect]
     Indication: MULTIPLE SCLEROSIS
     Route: 058
     Dates: start: 20080822

REACTIONS (4)
  - PARAESTHESIA [None]
  - BURNING SENSATION [None]
  - SKIN DISCOLOURATION [None]
  - CEREBROVASCULAR ACCIDENT [None]
